FAERS Safety Report 7768412-6 (Version None)
Quarter: 2011Q3

REPORT INFORMATION
  Report Type: 
  Country: None (occurrence: None)
  Receive Date: 20110922
  Receipt Date: 20110302
  Transmission Date: 20111222
  Serious: No
  Sender: FDA-Public Use
  Company Number: US-ASTRAZENECA-2011SE11980

PATIENT
  Age: 36 Year
  Sex: Female

DRUGS (7)
  1. SEROQUEL XR [Suspect]
     Indication: SLEEP DISORDER
     Route: 048
     Dates: start: 20100601, end: 20110227
  2. SEROQUEL XR [Suspect]
     Indication: SCHIZOAFFECTIVE DISORDER
     Route: 048
     Dates: start: 20100601, end: 20110227
  3. CYMBALTA [Concomitant]
  4. AMBIEN [Concomitant]
  5. DIPHENHYDRAMINE HCL [Concomitant]
  6. PROPRANOLOL [Concomitant]
  7. RISPERDAL [Concomitant]

REACTIONS (5)
  - INSOMNIA [None]
  - OROPHARYNGEAL PAIN [None]
  - HEADACHE [None]
  - DRUG DOSE OMISSION [None]
  - OFF LABEL USE [None]
